FAERS Safety Report 20305233 (Version 2)
Quarter: 2022Q1

REPORT INFORMATION
  Report Type: Report from Study
  Country: US (occurrence: US)
  Receive Date: 20220106
  Receipt Date: 20220122
  Transmission Date: 20220424
  Serious: Yes (Other)
  Sender: FDA-Public Use
  Company Number: US-NOVARTISPH-NVSC2022US001309

PATIENT
  Sex: Female

DRUGS (1)
  1. COSENTYX [Suspect]
     Active Substance: SECUKINUMAB
     Indication: Psoriatic arthropathy
     Dosage: UNK UNK, QW (FOR 5 WEEKS)
     Route: 058

REACTIONS (6)
  - Suicidal ideation [Unknown]
  - Nail discolouration [Unknown]
  - Foot fracture [Unknown]
  - Frustration tolerance decreased [Unknown]
  - Stress [Unknown]
  - Pain [Unknown]
